FAERS Safety Report 9242230 (Version 1)
Quarter: 2013Q2

REPORT INFORMATION
  Report Type: Spontaneous
  Country: US (occurrence: US)
  Receive Date: 20130419
  Receipt Date: 20130419
  Transmission Date: 20140414
  Serious: Yes (Hospitalization, Other)
  Sender: FDA-Public Use
  Company Number: US-PFIZER INC-2013119421

PATIENT
  Age: 34 Year
  Sex: Male

DRUGS (3)
  1. EPINEPHRINE [Suspect]
     Indication: ANAPHYLACTIC SHOCK
     Dosage: (1:1,000) 0.3 MG
     Route: 058
  2. EPINEPHRINE [Suspect]
     Dosage: (1:1,000) 0.5MG (0.5 ML)
     Route: 042
  3. DIPHENHYDRAMINE HYDROCHLORIDE [Concomitant]
     Indication: ANAPHYLACTIC SHOCK
     Dosage: UNK
     Route: 030

REACTIONS (4)
  - Myocardial ischaemia [Unknown]
  - Coronary artery stenosis [None]
  - Hypertension [None]
  - Tachycardia [None]
